FAERS Safety Report 8438774-5 (Version None)
Quarter: 2012Q2

REPORT INFORMATION
  Report Type: 
  Country: None (occurrence: None)
  Receive Date: 20120605
  Receipt Date: 20120524
  Transmission Date: 20120825
  Serious: Yes (Hospitalization, Other)
  Sender: FDA-Public Use
  Company Number: 2011016567

PATIENT
  Age: 67 Year
  Sex: Male
  Weight: 94 kg

DRUGS (68)
  1. DALTEPARIN SODIUM [Suspect]
     Indication: DEEP VEIN THROMBOSIS
     Dosage: 15000 IU, DAILY, SUBCUTANEOUS; 12500 IU, DAILY, SUBCUTANEOUS; 15000 IU, , SUBCUTANEOUS
     Route: 058
     Dates: start: 20101230, end: 20110119
  2. DALTEPARIN SODIUM [Suspect]
     Indication: DEEP VEIN THROMBOSIS
     Dosage: 15000 IU, DAILY, SUBCUTANEOUS; 12500 IU, DAILY, SUBCUTANEOUS; 15000 IU, , SUBCUTANEOUS
     Route: 058
     Dates: start: 20110102
  3. DALTEPARIN SODIUM [Suspect]
     Indication: DEEP VEIN THROMBOSIS
     Dosage: 15000 IU, DAILY, SUBCUTANEOUS; 12500 IU, DAILY, SUBCUTANEOUS; 15000 IU, , SUBCUTANEOUS
     Route: 058
     Dates: start: 20110202
  4. METOPROLOL [Concomitant]
  5. MONTELUKAST SODIUM [Concomitant]
  6. LORATADINE [Concomitant]
  7. ALOXI [Concomitant]
  8. MANNITOL [Concomitant]
  9. ANZEMET [Concomitant]
  10. ALLOPURINOL [Concomitant]
  11. RED BLOOD CELLS [Concomitant]
  12. BUTALBITAL AND ACETAMINOPHEN [Concomitant]
  13. ALBUTEROL [Concomitant]
  14. DIPYRIDAMOLE [Concomitant]
  15. GEMCITABINE [Concomitant]
  16. AMLODIPINE [Concomitant]
  17. FENTANYL [Concomitant]
  18. PIPERACILLIN AND TAZOBACTAM [Concomitant]
  19. SODIUM POLYSTYRENE SULFONATE [Concomitant]
  20. MONTELUKAST [Concomitant]
  21. ALPRAZOLAM [Concomitant]
  22. LIDODERM [Concomitant]
  23. CICLOPIROX [Concomitant]
  24. LISINOPRIL [Concomitant]
  25. METFORMIN HCL [Concomitant]
  26. RED BLOOD CELLS, CONCENTRATED (RED BLOOD CELLS, CONCENTRATED) [Concomitant]
  27. DIPHENHYDRAMINE HCL [Concomitant]
  28. HEPARIN [Concomitant]
  29. MULTIVITAMINS (ASCORBIC ACID, ERGOCALCIFEROL, FOLIC ACID, NICOTINAMIDE [Concomitant]
  30. CYCLOBENZAPRINE [Concomitant]
  31. PROCHLORPERAZINE [Concomitant]
  32. POLYETHYLENE GLYCOL (MAROGOL) [Concomitant]
  33. NEUPOGEN [Concomitant]
  34. OXYCODONE HCL [Concomitant]
  35. SODIUM BICARBONATE [Concomitant]
  36. KAOPECTATE (DAOLIN, PECTIN) [Concomitant]
  37. FUROSEMIDE [Concomitant]
  38. MYLANTA (ALUMINIUM HYDROXIDE GEL, DRIED, MAGNESIUM HYDROXIDE, SIMETICO [Concomitant]
  39. LEVOFLOXACIN [Concomitant]
  40. LANSOPRAZOLE [Concomitant]
  41. LORAZEPAM [Concomitant]
  42. OMEPRAZOLE [Concomitant]
  43. PHENAZOPYRIDINE HCL TAB [Concomitant]
  44. FEXOFENADINE [Concomitant]
  45. TAMSULOSIN HCL [Concomitant]
  46. LOPERAMIDE [Concomitant]
  47. SODIUM CHLORIDE [Concomitant]
  48. ONDANSETRON [Concomitant]
  49. VENLAFAXINE HCL [Concomitant]
  50. SENOKOT [Concomitant]
  51. NAPROXEN [Concomitant]
  52. MAGNESIUM OXIDE [Concomitant]
  53. ACETAMINOPHEN [Concomitant]
  54. SENOKOT [Concomitant]
  55. DUTASTERIDE [Concomitant]
  56. GABAPENTIN [Concomitant]
  57. EMEND [Concomitant]
  58. TAMSULOSIN HCL [Concomitant]
  59. CARBOPLATIN [Concomitant]
  60. PAROXETINE [Concomitant]
  61. POTASSIUM CHLORIDE [Concomitant]
  62. CELECOXIB [Concomitant]
  63. LINEZOLID [Concomitant]
  64. MORPHINE [Concomitant]
  65. PERCOCET [Concomitant]
  66. DEXAMETHASONE SODIUM POSPHATE [Concomitant]
  67. ZOFRAN [Concomitant]
  68. GUAIFENESIN [Concomitant]

REACTIONS (19)
  - PELVIC PAIN [None]
  - CELLULITIS [None]
  - HIATUS HERNIA [None]
  - METASTATIC NEOPLASM [None]
  - SEPSIS [None]
  - URINARY TRACT INFECTION STAPHYLOCOCCAL [None]
  - HYDRONEPHROSIS [None]
  - PLEURAL EFFUSION [None]
  - LYMPHATIC OBSTRUCTION [None]
  - RENAL FAILURE ACUTE [None]
  - ANAEMIA [None]
  - PAIN [None]
  - THROMBOCYTOPENIA [None]
  - DEHYDRATION [None]
  - HYPOPHOSPHATAEMIA [None]
  - HYPOKALAEMIA [None]
  - HYPOMAGNESAEMIA [None]
  - LYMPHADENOPATHY [None]
  - BONE MARROW FAILURE [None]
